FAERS Safety Report 12329123 (Version 1)
Quarter: 2016Q2

REPORT INFORMATION
  Report Type: Spontaneous
  Country: US (occurrence: US)
  Receive Date: 20160503
  Receipt Date: 20160503
  Transmission Date: 20160815
  Serious: Yes (Other)
  Sender: FDA-Public Use
  Company Number: US-MYLANLABS-2016M1017319

PATIENT

DRUGS (4)
  1. HALOPERIDOL INJECTION USP [Suspect]
     Active Substance: HALOPERIDOL
     Indication: AGITATION
     Dosage: 5 MG, ONCE
     Route: 030
     Dates: start: 20160304, end: 20160304
  2. DIPHENHYDRAMINE. [Suspect]
     Active Substance: DIPHENHYDRAMINE
     Indication: AGITATION
     Dosage: 25 MG, ONCE
     Route: 030
     Dates: start: 20160304, end: 20160304
  3. HALOPERIDOL INJECTION USP [Suspect]
     Active Substance: HALOPERIDOL
     Indication: OFF LABEL USE
  4. DIPHENHYDRAMINE. [Suspect]
     Active Substance: DIPHENHYDRAMINE
     Indication: OFF LABEL USE

REACTIONS (1)
  - Dystonia [Recovered/Resolved]

NARRATIVE: CASE EVENT DATE: 20160305
